FAERS Safety Report 7040130-1 (Version None)
Quarter: 2010Q4

REPORT INFORMATION
  Report Type: 
  Country: None (occurrence: None)
  Receive Date: 20101012
  Receipt Date: 20101004
  Transmission Date: 20110411
  Serious: Yes (Other)
  Sender: FDA-Public Use
  Company Number: PHHY2010US64106

PATIENT
  Sex: Female

DRUGS (1)
  1. GENTEAL MILD LUBRICANT EYE DROPS (NVO) [Suspect]
     Indication: DRY EYE
     Dosage: UNK
     Dates: start: 19800101

REACTIONS (4)
  - CATARACT OPERATION [None]
  - DRY EYE [None]
  - EYE IRRITATION [None]
  - LIMB DEFORMITY [None]
